FAERS Safety Report 8600903-8 (Version None)
Quarter: 2012Q3

REPORT INFORMATION
  Report Type: 
  Country: None (occurrence: None)
  Receive Date: 20120806
  Receipt Date: 20120720
  Transmission Date: 20120928
  Serious: Yes (Other)
  Sender: FDA-Public Use
  Company Number: EUS-2012-00599

PATIENT
  Age: 25 Year
  Sex: Female

DRUGS (4)
  1. ASPARAGINASE (ASPARAGINASE) 10000846 (V.15.0) [Suspect]
     Indication: ACUTE LYMPHOCYTIC LEUKAEMIA
     Dosage: ON DAYS 8,11,15 AND 18
  2. DEXAMETHASONE SODIUM PHOSPHATE [Concomitant]
  3. VINCRISTINE [Concomitant]
  4. DOXORUBICIN HCL [Concomitant]

REACTIONS (7)
  - HYPERTRIGLYCERIDAEMIA [None]
  - CYTOMEGALOVIRUS HEPATITIS [None]
  - ABDOMINAL DISTENSION [None]
  - ABDOMINAL PAIN [None]
  - BLOOD CHOLESTEROL INCREASED [None]
  - HEPATIC STEATOSIS [None]
  - PANCYTOPENIA [None]
